FAERS Safety Report 14315244 (Version 2)
Quarter: 2019Q1

REPORT INFORMATION
  Report Type: Spontaneous
  Country: CA (occurrence: CA)
  Receive Date: 20171221
  Receipt Date: 20190325
  Transmission Date: 20190417
  Serious: Yes (Life-Threatening, Other)
  Sender: FDA-Public Use
  Company Number: CA-BAXTER-2017BAX043341

PATIENT
  Age: 36 Year
  Sex: Male

DRUGS (13)
  1. CICLOSPORIN [Suspect]
     Active Substance: CYCLOSPORINE
     Dosage: DOSAGE FORM: NOT SPECIFIED
     Route: 048
  2. METHYLPREDNISOLONE. [Suspect]
     Active Substance: METHYLPREDNISOLONE
     Indication: IMMUNOSUPPRESSANT DRUG THERAPY
     Route: 065
  3. N-ACETYLCYSTEINE [Suspect]
     Active Substance: ACETYLCYSTEINE
     Indication: THROMBOTIC THROMBOCYTOPENIC PURPURA
     Dosage: DOSAGE FORM: NOT SPECIFIED
     Route: 042
  4. N-ACETYLCYSTEINE [Suspect]
     Active Substance: ACETYLCYSTEINE
     Dosage: DOSAGE FORM: NOT SPECIFIED
     Route: 042
  5. ACITRETIN. [Concomitant]
     Active Substance: ACITRETIN
     Indication: PRODUCT USED FOR UNKNOWN INDICATION
     Dosage: DOSAGE FORM: NOT SPECIFIED
     Route: 065
  6. RITUXIMAB. [Suspect]
     Active Substance: RITUXIMAB
     Indication: IMMUNOSUPPRESSANT DRUG THERAPY
     Route: 065
  7. PROCYTOX (CYCLOPHOSPHAMIDE) 2000MG/VIAL [Suspect]
     Active Substance: CYCLOPHOSPHAMIDE
     Indication: IMMUNOSUPPRESSANT DRUG THERAPY
     Dosage: DOSAGE FORM: NOT SPECIFIED
     Route: 042
  8. METHYLPREDNISOLONE. [Suspect]
     Active Substance: METHYLPREDNISOLONE
     Indication: THROMBOTIC THROMBOCYTOPENIC PURPURA
     Route: 065
  9. RITUXIMAB. [Suspect]
     Active Substance: RITUXIMAB
     Indication: THROMBOTIC THROMBOCYTOPENIC PURPURA
     Route: 065
  10. PROCYTOX (CYCLOPHOSPHAMIDE) 2000MG/VIAL [Suspect]
     Active Substance: CYCLOPHOSPHAMIDE
     Indication: THROMBOTIC THROMBOCYTOPENIC PURPURA
     Dosage: DOSAGE FORM: NOT SPECIFIED
     Route: 042
  11. BORTEZOMIB. [Suspect]
     Active Substance: BORTEZOMIB
     Indication: THROMBOTIC THROMBOCYTOPENIC PURPURA
     Route: 042
  12. BORTEZOMIB. [Suspect]
     Active Substance: BORTEZOMIB
     Indication: IMMUNOSUPPRESSANT DRUG THERAPY
     Route: 042
  13. CICLOSPORIN [Suspect]
     Active Substance: CYCLOSPORINE
     Indication: THROMBOTIC THROMBOCYTOPENIC PURPURA
     Dosage: DOSAGE FORM: NOT SPECIFIED
     Route: 048

REACTIONS (16)
  - Cerebrovascular accident [Recovering/Resolving]
  - Device related sepsis [Recovering/Resolving]
  - Drug ineffective [Unknown]
  - Klebsiella infection [Unknown]
  - Device related infection [Unknown]
  - Brain oedema [Recovering/Resolving]
  - Staphylococcal bacteraemia [Unknown]
  - Intentional product use issue [Unknown]
  - Enterococcal infection [Recovering/Resolving]
  - Thrombotic thrombocytopenic purpura [Recovering/Resolving]
  - Abdominal abscess [Recovering/Resolving]
  - Candida infection [Unknown]
  - Clostridium difficile infection [Recovering/Resolving]
  - Empyema [Recovering/Resolving]
  - Sepsis [Unknown]
  - Staphylococcal sepsis [Recovering/Resolving]
